FAERS Safety Report 4836136-0 (Version None)
Quarter: 2005Q4

REPORT INFORMATION
  Report Type: 
  Country: None (occurrence: None)
  Receive Date: 20051123
  Receipt Date: 20051101
  Transmission Date: 20060501
  Serious: Yes (Hospitalization)
  Sender: FDA-Public Use
  Company Number: NZ-MERCK-0511NZL00012

PATIENT
  Age: 61 Year
  Sex: Male

DRUGS (7)
  1. RANITIDINE [Concomitant]
     Indication: CARDIAC DISORDER
     Route: 065
     Dates: start: 19900101
  2. LOSARTAN POTASSIUM [Concomitant]
     Indication: CARDIAC DISORDER
     Route: 065
     Dates: start: 20050101
  3. FUROSEMIDE [Concomitant]
     Indication: CARDIAC DISORDER
     Route: 065
     Dates: start: 19900101
  4. ASPIRIN [Concomitant]
     Indication: CARDIAC DISORDER
     Route: 065
     Dates: start: 19900101
  5. ZOCOR [Suspect]
     Indication: BLOOD CHOLESTEROL INCREASED
     Route: 048
     Dates: start: 20050101
  6. AMIODARONE [Concomitant]
     Indication: CARDIAC DISORDER
     Route: 065
     Dates: start: 19900101
  7. METOPROLOL TARTRATE [Concomitant]
     Indication: CARDIAC DISORDER
     Route: 065
     Dates: start: 19900101

REACTIONS (1)
  - CARDIAC FIBRILLATION [None]
